FAERS Safety Report 9296742 (Version 1)
Quarter: 2013Q2

REPORT INFORMATION
  Report Type: Report from Study
  Country: US (occurrence: AR)
  Receive Date: 20130517
  Receipt Date: 20130517
  Transmission Date: 20140414
  Serious: Yes (Other)
  Sender: FDA-Public Use
  Company Number: US-ABBOTT-13P-163-1088101-00

PATIENT
  Age: 28 Year
  Sex: Female

DRUGS (4)
  1. KALETRA [Suspect]
     Indication: ANTIVIRAL TREATMENT
     Dosage: 4 TAB/CAPS DAILY
     Route: 048
     Dates: start: 20100715, end: 20100722
  2. KALETRA [Suspect]
     Dosage: 4 TAB/CAPS DAILY
     Route: 048
     Dates: start: 20100812
  3. LAMIVUDINE + ZIDOVUDINE [Suspect]
     Indication: ANTIVIRAL TREATMENT
     Dosage: 2 TAB/CAPS DAILY
     Route: 048
     Dates: start: 20100715, end: 20100722
  4. LAMIVUDINE + ZIDOVUDINE [Suspect]
     Dosage: 2 TAB/CAPS DAILY
     Route: 048
     Dates: start: 20100812

REACTIONS (1)
  - Toxoplasmosis [Unknown]
